FAERS Safety Report 9751219 (Version 1)
Quarter: 2013Q4

REPORT INFORMATION
  Report Type: Spontaneous
  Country: US (occurrence: US)
  Receive Date: 20131212
  Receipt Date: 20131212
  Transmission Date: 20140711
  Serious: No
  Sender: FDA-Public Use
  Company Number: US-BIOGENIDEC-2013BI099819

PATIENT
  Sex: Female

DRUGS (12)
  1. TECFIDERA [Suspect]
     Indication: MULTIPLE SCLEROSIS
     Route: 048
     Dates: start: 20130910
  2. TECFIDERA [Suspect]
     Indication: MULTIPLE SCLEROSIS
     Route: 048
  3. EFFEXOR [Concomitant]
  4. TOVIAZ [Concomitant]
  5. SYNTHROID [Concomitant]
  6. ALLEGRA [Concomitant]
  7. NAPROXEN [Concomitant]
  8. VITAMIN D [Concomitant]
  9. JUNEL [Concomitant]
  10. PEPCID [Concomitant]
  11. VITAMIN B 12 [Concomitant]
  12. IBUPROFEN [Concomitant]

REACTIONS (5)
  - Headache [Not Recovered/Not Resolved]
  - Flushing [Not Recovered/Not Resolved]
  - Erythema [Not Recovered/Not Resolved]
  - Nausea [Not Recovered/Not Resolved]
  - Vomiting [Not Recovered/Not Resolved]
